FAERS Safety Report 6884792-8 (Version None)
Quarter: 2010Q3

REPORT INFORMATION
  Report Type: 
  Country: None (occurrence: None)
  Receive Date: 20100729
  Receipt Date: 20071011
  Transmission Date: 20110219
  Serious: No
  Sender: FDA-Public Use
  Company Number: US-PFIZER INC-2007061741

PATIENT
  Sex: Male
  Weight: 130.18 kg

DRUGS (6)
  1. CELEBREX [Suspect]
     Indication: PAIN IN EXTREMITY
     Dates: start: 20070724, end: 20070725
  2. CELEBREX [Suspect]
  3. CELEBREX [Suspect]
     Indication: OEDEMA PERIPHERAL
  4. CELEBREX [Suspect]
  5. LISINOPRIL [Concomitant]
     Indication: HYPERTENSION
  6. ALL OTHER THERAPEUTIC PRODUCTS [Concomitant]

REACTIONS (2)
  - PARAESTHESIA [None]
  - RASH [None]
